FAERS Safety Report 8321619-1 (Version None)
Quarter: 2012Q2

REPORT INFORMATION
  Report Type: 
  Country: None (occurrence: None)
  Receive Date: 20120430
  Receipt Date: 20120424
  Transmission Date: 20120825
  Serious: Yes (Hospitalization, Other)
  Sender: FDA-Public Use
  Company Number: US-AMGEN-USASP2011021622

PATIENT
  Age: 46 Year
  Sex: Male
  Weight: 108.84 kg

DRUGS (2)
  1. BENADRYL [Concomitant]
     Dosage: UNK
     Dates: start: 20111101
  2. ENBREL [Suspect]
     Indication: PSORIASIS
     Dosage: 50 MG, QWK
     Dates: start: 20051205, end: 20120120

REACTIONS (10)
  - PROSTATOMEGALY [None]
  - CONTUSION [None]
  - OEDEMA PERIPHERAL [None]
  - HYPOGLYCAEMIC UNCONSCIOUSNESS [None]
  - LOCAL SWELLING [None]
  - MASS [None]
  - FEELING HOT [None]
  - PAIN [None]
  - URINE ANALYSIS ABNORMAL [None]
  - DYSURIA [None]
